FAERS Safety Report 22594565 (Version 1)
Quarter: 2023Q2

REPORT INFORMATION
  Report Type: Spontaneous
  Country: UY (occurrence: UY)
  Receive Date: 20230613
  Receipt Date: 20230613
  Transmission Date: 20230721
  Serious: No
  Sender: FDA-Public Use
  Company Number: UY-PFIZER INC-PV202300102465

PATIENT
  Age: 14 Year
  Sex: Male

DRUGS (1)
  1. GENOTROPIN [Suspect]
     Active Substance: SOMATROPIN
     Indication: Growth hormone deficiency
     Dosage: 1.5MG TO 2MG, 7 TIMES PER WEEK

REACTIONS (2)
  - Device information output issue [Unknown]
  - Device mechanical issue [Unknown]
